FAERS Safety Report 9759571 (Version 1)
Quarter: 2013Q4

REPORT INFORMATION
  Report Type: Spontaneous
  Country: US (occurrence: US)
  Receive Date: 20131216
  Receipt Date: 20131216
  Transmission Date: 20140711
  Serious: No
  Sender: FDA-Public Use
  Company Number: US-GILEAD-2010-0028144

PATIENT
  Sex: Male
  Weight: 44 kg

DRUGS (12)
  1. LETAIRIS [Suspect]
     Indication: PULMONARY ARTERIAL HYPERTENSION
     Route: 048
     Dates: start: 20090114
  2. TYVASO [Concomitant]
  3. COUMADIN [Concomitant]
  4. FLONASE [Concomitant]
  5. ALBUTEROL [Concomitant]
  6. GUMMY SWIRL CHEWABLE [Concomitant]
  7. CETIRIZINE [Concomitant]
  8. DILTIAZEM [Concomitant]
  9. REVATIO [Concomitant]
  10. OXYGEN [Concomitant]
  11. FLOVENT [Concomitant]
  12. DIGOXIN [Concomitant]

REACTIONS (1)
  - Rhinorrhoea [Unknown]
